FAERS Safety Report 21864582 (Version 1)
Quarter: 2023Q1

REPORT INFORMATION
  Report Type: Other
  Country: GB (occurrence: GB)
  Receive Date: 20230116
  Receipt Date: 20230116
  Transmission Date: 20230418
  Serious: Yes (Death, Hospitalization, Other)
  Sender: FDA-Public Use
  Company Number: GB-MACLEODS PHARMA EU LTD-MAC2023039188

PATIENT

DRUGS (46)
  1. CLOPIDOGREL [Suspect]
     Active Substance: CLOPIDOGREL BISULFATE
     Indication: Product used for unknown indication
     Dosage: 75 MILLIGRAM, QD (SUSPENDED ON ADMISSION, STOP DATE 06 OCT 2022)
     Route: 065
  2. EDOXABAN [Suspect]
     Active Substance: EDOXABAN
     Indication: Atrial fibrillation
     Dosage: 30 MILLIGRAM, QD (SUSPENDED ON ADMISSION)
     Route: 065
  3. ALLOPURINOL [Concomitant]
     Active Substance: ALLOPURINOL
     Indication: Product used for unknown indication
     Dosage: 100 MILLIGRAM, QD
     Route: 065
     Dates: start: 20220419
  4. AMIODARONE [Concomitant]
     Active Substance: AMIODARONE
     Indication: Product used for unknown indication
     Dosage: 200 MILLIGRAM, QD (IN THE MORNING, START ON 12 OCTOBER- PATIENT STATES HAS BEEN TAKING SINCE OCT 21.
     Route: 065
  5. ASPIRIN [Concomitant]
     Active Substance: ASPIRIN
     Indication: Product used for unknown indication
     Dosage: UNK
     Route: 065
  6. ASPIRIN [Concomitant]
     Active Substance: ASPIRIN
     Dosage: UNK
     Route: 065
  7. CODEINE [Concomitant]
     Active Substance: CODEINE
     Indication: Product used for unknown indication
     Dosage: 15 MILLIGRAM, PRN (15MG TABLETS ONE OR TWO TO BE TAKEN EVERY 4 TO 6 HOURS WHEN NECESSARY (MAX 8 TAB/
     Route: 065
     Dates: start: 20220425
  8. CODEINE [Concomitant]
     Active Substance: CODEINE
     Dosage: UNK
     Route: 065
  9. CODEINE [Concomitant]
     Active Substance: CODEINE
     Dosage: UNK
     Route: 065
  10. CODEINE [Concomitant]
     Active Substance: CODEINE
     Dosage: UNK
     Route: 065
  11. CODEINE [Concomitant]
     Active Substance: CODEINE
     Dosage: UNK
     Route: 065
  12. ACETAMINOPHEN [Concomitant]
     Active Substance: ACETAMINOPHEN
     Indication: Product used for unknown indication
     Dosage: 500 MILLIGRAM (PARACETAMOL 500MG TABLETS TAKE 1-2 4 TIMES DAILY ASREQUIRED (100 TABLETS)-PATIENT STA
     Route: 065
     Dates: start: 20220309
  13. ACETAMINOPHEN [Concomitant]
     Active Substance: ACETAMINOPHEN
     Dosage: UNK
     Route: 065
  14. ACETAMINOPHEN [Concomitant]
     Active Substance: ACETAMINOPHEN
     Dosage: UNK
     Route: 065
  15. ATORVASTATIN [Concomitant]
     Active Substance: ATORVASTATIN
     Indication: Product used for unknown indication
     Dosage: 80 MILLIGRAM, QD (AT NIGHT)
     Route: 065
  16. BISOPROLOL [Concomitant]
     Active Substance: BISOPROLOL
     Indication: Product used for unknown indication
     Dosage: 10 MILLIGRAM, QD (SUSPENDED O/A)
     Route: 065
  17. BUMETANIDE [Concomitant]
     Active Substance: BUMETANIDE
     Indication: Product used for unknown indication
     Dosage: 2 MILLIGRAM, BID (1MG TABLETS, SUSPENDED O/A)
     Route: 065
  18. BUMETANIDE [Concomitant]
     Active Substance: BUMETANIDE
     Dosage: 2 MILLIGRAM, QD (1 MG TABLETS. TAKE TWO TABLETS EACH DAY FOR 28 DAYS)
     Route: 065
     Dates: start: 20220223
  19. DIHYDROCODEINE [Concomitant]
     Active Substance: DIHYDROCODEINE
     Indication: Product used for unknown indication
     Dosage: UNK
     Route: 065
  20. FUROSEMIDE [Concomitant]
     Active Substance: FUROSEMIDE
     Indication: Product used for unknown indication
     Dosage: UNK
     Route: 065
  21. GUAIACOL [Concomitant]
     Active Substance: GUAIACOL
     Indication: Product used for unknown indication
     Dosage: UNK
     Route: 065
  22. IBUPROFEN [Concomitant]
     Active Substance: IBUPROFEN
     Indication: Product used for unknown indication
     Dosage: UNK
     Route: 065
  23. LANSOPRAZOLE [Concomitant]
     Active Substance: LANSOPRAZOLE
     Indication: Product used for unknown indication
     Dosage: 30 MILLIGRAM, QD ( GASTRO-RESISTANT CAPSULE)
     Route: 065
  24. METOLAZONE [Concomitant]
     Active Substance: METOLAZONE
     Indication: Product used for unknown indication
     Dosage: 5 MILLIGRAM, QD (AS DIRECTED. 28 -PATIENT HADN^T STARTED PRE-ADMISSION DUE TO BEING ADMITTED.)
     Route: 065
  25. METOLAZONE [Concomitant]
     Active Substance: METOLAZONE
     Dosage: 2.5 MILLIGRAM PER 2 WEEKS (5 MG TABLETS. TAKE HALF A TABLET ON MONDAY AND FRIDAY FOR 2 WEEKS AS DIRE
     Route: 065
     Dates: start: 20220223
  26. METOLAZONE [Concomitant]
     Active Substance: METOLAZONE
     Dosage: 2.5 MILLIGRAM PER 2 WEEKS (5 MG TABLETS. TAKE HALF A TABLET ON MONDAY AND FRIDAY FOR 2 WEEKS AS DIRE
     Route: 065
     Dates: start: 20220216
  27. METOLAZONE [Concomitant]
     Active Substance: METOLAZONE
     Dosage: 5 MILLIGRAM, QD (AS DIRECTED. 28 -PATIENT HADN^T STARTED PRE-ADMISSION DUE TO BEING ADMITTED.)
     Route: 065
     Dates: start: 20220504
  28. MOMETASONE [Concomitant]
     Active Substance: MOMETASONE
     Indication: Product used for unknown indication
     Dosage: 2 DOSAGE FORM, BID (50MICROGRAMS/DOSE, ONE SPRAY IN EACH NOSTRIL TWICE A DAY)
     Route: 065
  29. Vitamin B complex strong [Concomitant]
     Indication: Product used for unknown indication
     Dosage: 1 DOSAGE FORM, QD (28 TABLETS)
     Route: 065
  30. ACETAMINOPHEN\DIHYDROCODEINE [Concomitant]
     Active Substance: ACETAMINOPHEN\DIHYDROCODEINE
     Indication: Product used for unknown indication
     Dosage: UNK
     Route: 065
  31. ACETAMINOPHEN\DIHYDROCODEINE [Concomitant]
     Active Substance: ACETAMINOPHEN\DIHYDROCODEINE
     Dosage: UNK
     Route: 065
  32. ACETAMINOPHEN\DIHYDROCODEINE [Concomitant]
     Active Substance: ACETAMINOPHEN\DIHYDROCODEINE
     Dosage: UNK
     Route: 065
  33. TERPIN [Concomitant]
     Active Substance: TERPIN
     Indication: Product used for unknown indication
     Dosage: UNK
     Route: 065
  34. THIAMINE [Concomitant]
     Active Substance: THIAMINE
     Indication: Product used for unknown indication
     Dosage: 100 MILLIGRAM, TID
     Route: 065
  35. TRAMADOL [Concomitant]
     Active Substance: TRAMADOL
     Indication: Product used for unknown indication
     Dosage: UNK
     Route: 065
  36. ISOSORBIDE MONONITRATE [Concomitant]
     Active Substance: ISOSORBIDE MONONITRATE
     Indication: Product used for unknown indication
     Dosage: 30 MILLIGRAM, QD (60MG TABLETS, HALF DAILY, SUSPENDED O/A)
     Route: 065
  37. BECLOMETHASONE\FORMOTEROL [Concomitant]
     Active Substance: BECLOMETHASONE\FORMOTEROL
     Indication: Product used for unknown indication
     Dosage: 2 DOSAGE FORM, BID (100MICROGRAMS/DOSE / 6MICROGRAMS/DOSE)
  38. ALBUTEROL [Concomitant]
     Active Substance: ALBUTEROL
     Indication: Product used for unknown indication
     Dosage: 100 MICROGRAM, PRN (100MICROGRAMS/DOSE INHALER CFC FREE (TEVA UK LTD) ONE OR TWO PUFFS FOUR TIMES A
     Dates: start: 20220331
  39. Sando-K [Concomitant]
     Indication: Product used for unknown indication
     Dosage: 2 DOSAGE FORM, BID (DISSOLVE IN WATER, TAKE FOR 3 DAYS-COMPLETE)
     Route: 065
     Dates: start: 20220210
  40. Sando-K [Concomitant]
     Dosage: 2 DOSAGE FORM, BID (DISSOLVE IN WATER, ON MONDAY AND FRIDAY FOR 4 WEEKS AS DIRECTED. DISCARD THE REM
     Route: 065
  41. FERINJECT [Concomitant]
     Active Substance: FERRIC CARBOXYMALTOSE
     Indication: Product used for unknown indication
     Dosage: UNK
     Route: 065
  42. SENNA [Concomitant]
     Active Substance: SENNA LEAF\SENNOSIDES\SENNOSIDES A AND B
     Indication: Product used for unknown indication
     Dosage: 7.5 MILLIGRAM, PRN (1-2 AS REQUIRED-PATIENT STATES TAKES 1-2 AT NIGHT REGULARLY)
     Route: 065
  43. BUTYLSCOPOLAMINE BROMIDE [Concomitant]
     Active Substance: BUTYLSCOPOLAMINE BROMIDE
     Indication: Abdominal pain
     Dosage: 10 MILLIGRAM, PRN (1-2, 4 TIMES DAILY, 56 TABLET)
     Route: 065
  44. NITROGLYCERIN [Concomitant]
     Active Substance: NITROGLYCERIN
     Indication: Product used for unknown indication
     Dosage: UNK (400MICROGRAMS/DOSE PUMP; ONE OR TWO DOSES UNDER TONGUE AND THEN CLOSE MOUTH AS DIRECTED, SUBLIN
     Route: 060
  45. VITAMINS [Concomitant]
     Active Substance: VITAMINS
     Indication: Product used for unknown indication
     Dosage: 1 DOSAGE FORM, QD (VALUPAK MULTIVITAMIN)
     Route: 065
  46. Zerodouble gel [Concomitant]
     Indication: Product used for unknown indication
     Dosage: 500 MILLIGRAM, PRN ((THORNTON + ROSS LTD) APPLY SEVERAL TIMES DAILY 500 GRAM)
     Route: 065

REACTIONS (4)
  - Death [Fatal]
  - Haemoptysis [Unknown]
  - Rectal haemorrhage [Unknown]
  - Epistaxis [Unknown]
